FAERS Safety Report 7729605-7 (Version None)
Quarter: 2011Q3

REPORT INFORMATION
  Report Type: 
  Country: None (occurrence: None)
  Receive Date: 20110906
  Receipt Date: 20110831
  Transmission Date: 20111222
  Serious: Yes (Hospitalization)
  Sender: FDA-Public Use
  Company Number: CH-NAPPMUNDI-DEU-2011-0007756

PATIENT
  Age: 68 Year
  Sex: Female

DRUGS (4)
  1. OXYCODONE HCL [Suspect]
     Indication: PAIN
     Dosage: 50 MG, BID
     Route: 048
  2. NALTREXONE HYDROCHLORIDE [Suspect]
     Indication: PAIN
     Dosage: 50 MG, SINGLE
     Route: 048
     Dates: start: 20110726
  3. FENTANYL-100 [Suspect]
     Indication: PAIN
     Dosage: 200 MCG, Q1H
     Route: 062
  4. METHADON STREULI [Suspect]
     Indication: PAIN
     Dosage: 2.5 MG, QID
     Route: 048

REACTIONS (3)
  - DRUG ADMINISTRATION ERROR [None]
  - DRUG WITHDRAWAL SYNDROME [None]
  - DELIRIUM [None]
